FAERS Safety Report 7675641-9 (Version None)
Quarter: 2011Q3

REPORT INFORMATION
  Report Type: 
  Country: None (occurrence: None)
  Receive Date: 20110810
  Receipt Date: 20110805
  Transmission Date: 20111222
  Serious: Yes (Other)
  Sender: FDA-Public Use
  Company Number: US-PFIZER INC-2011118623

PATIENT
  Sex: Female

DRUGS (3)
  1. BUPROPION [Concomitant]
     Indication: SMOKING CESSATION THERAPY
  2. BUPROPION [Concomitant]
     Indication: DEPRESSION
     Dosage: UNK
     Dates: start: 20081101, end: 20090701
  3. CHANTIX [Suspect]
     Indication: SMOKING CESSATION THERAPY
     Dosage: 0.5 MG, UNK
     Dates: start: 20080914, end: 20081001

REACTIONS (9)
  - SUICIDE ATTEMPT [None]
  - ABNORMAL BEHAVIOUR [None]
  - INTENTIONAL OVERDOSE [None]
  - MENTAL DISORDER [None]
  - IMPAIRED DRIVING ABILITY [None]
  - DEPRESSION [None]
  - AGGRESSION [None]
  - EMOTIONAL DISTRESS [None]
  - ANXIETY [None]
